FAERS Safety Report 9192543 (Version 2)
Quarter: 2013Q2

REPORT INFORMATION
  Report Type: Spontaneous
  Country: US (occurrence: US)
  Receive Date: 20130327
  Receipt Date: 20130403
  Transmission Date: 20140414
  Serious: No
  Sender: FDA-Public Use
  Company Number: US-PFIZER INC-2013094353

PATIENT
  Age: 65 Year
  Sex: Male

DRUGS (3)
  1. SUTENT [Suspect]
     Indication: MALIGNANT NEOPLASM OF EYE
     Dosage: 25 MG, DAILY
     Route: 048
  2. SUTENT [Suspect]
     Indication: MALIGNANT PALATE NEOPLASM
  3. SUTENT [Suspect]
     Indication: MALIGNANT MELANOMA

REACTIONS (9)
  - Off label use [Unknown]
  - Discomfort [Unknown]
  - Pain [Unknown]
  - Muscle spasms [Unknown]
  - Fatigue [Unknown]
  - Asthenia [Unknown]
  - Arthralgia [Unknown]
  - Musculoskeletal discomfort [Unknown]
  - Cough [Unknown]
